FAERS Safety Report 8963791 (Version 1)
Quarter: 2012Q4

REPORT INFORMATION
  Report Type: 
  Country: ZA (occurrence: ZA)
  Receive Date: 20121214
  Receipt Date: 20121214
  Transmission Date: 20130627
  Serious: Yes (Other)
  Sender: FDA-Public Use
  Company Number: ZA-SANOFI-AVENTIS-2012SA089358

PATIENT
  Age: 78 Year
  Sex: Male

DRUGS (4)
  1. LANTUS [Suspect]
     Indication: DIABETES
     Route: 058
     Dates: start: 201208
  2. APIDRA [Suspect]
     Indication: DIABETES
     Route: 058
     Dates: start: 201208
  3. ASPIRIN [Concomitant]
     Route: 048
  4. ANTIHYPERTENSIVES [Concomitant]

REACTIONS (2)
  - Altered state of consciousness [Recovered/Resolved]
  - Feeling abnormal [Recovered/Resolved]
